FAERS Safety Report 9750033 (Version 1)
Quarter: 2013Q4

REPORT INFORMATION
  Report Type: Spontaneous
  Country: US (occurrence: US)
  Receive Date: 20131212
  Receipt Date: 20131212
  Transmission Date: 20140711
  Serious: No
  Sender: FDA-Public Use
  Company Number: US-GILEAD-US-CVT-090684

PATIENT
  Sex: Male

DRUGS (3)
  1. RANEXA [Suspect]
     Indication: ANGINA PECTORIS
     Dates: end: 200907
  2. RANEXA [Suspect]
     Dates: start: 200907
  3. UROXATRAL [Concomitant]
     Indication: DYSURIA

REACTIONS (1)
  - Dysuria [Not Recovered/Not Resolved]
